FAERS Safety Report 12317404 (Version 3)
Quarter: 2016Q3

REPORT INFORMATION
  Report Type: Spontaneous
  Country: US (occurrence: US)
  Receive Date: 20160429
  Receipt Date: 20160711
  Transmission Date: 20161109
  Serious: No
  Sender: FDA-Public Use
  Company Number: US-PFIZER INC-2016211115

PATIENT
  Age: 49 Year
  Sex: Female
  Weight: 101 kg

DRUGS (3)
  1. REGURIN [Concomitant]
     Dosage: 10 MG, UNK
     Dates: start: 2013
  2. BACLOFEN. [Concomitant]
     Active Substance: BACLOFEN
     Indication: MUSCLE SPASTICITY
     Dosage: 60 MG, UNK (STARTED AT 60MG AND THIS WAS CUT DOWN AS SHE GOT BETTER)
  3. LUSTRAL [Suspect]
     Active Substance: SERTRALINE HYDROCHLORIDE
     Dosage: 100 MG, 1X/DAY (100MG TABLET)
     Route: 048
     Dates: start: 2015

REACTIONS (7)
  - Somnolence [Not Recovered/Not Resolved]
  - Abnormal behaviour [Not Recovered/Not Resolved]
  - Irritability [Unknown]
  - Agitation [Unknown]
  - Fatigue [Not Recovered/Not Resolved]
  - Drug ineffective [Unknown]
  - Amnesia [Not Recovered/Not Resolved]
